FAERS Safety Report 7925398-9 (Version None)
Quarter: 2011Q4

REPORT INFORMATION
  Report Type: 
  Country: None (occurrence: None)
  Receive Date: 20111118
  Receipt Date: 20110405
  Transmission Date: 20120403
  Serious: No
  Sender: FDA-Public Use
  Company Number: US-AMGEN-USASP2011018101

PATIENT
  Age: 77 Year
  Sex: Female

DRUGS (1)
  1. ENBREL [Suspect]
     Indication: RHEUMATOID ARTHRITIS
     Dosage: 50 MG, QWK
     Dates: start: 20090901, end: 20100401

REACTIONS (6)
  - TOOTHACHE [None]
  - FIBROMYALGIA [None]
  - BRONCHITIS [None]
  - TINNITUS [None]
  - RHEUMATOID ARTHRITIS [None]
  - PAIN IN JAW [None]
